FAERS Safety Report 7669720-X (Version None)
Quarter: 2011Q3

REPORT INFORMATION
  Report Type: 
  Country: None (occurrence: None)
  Receive Date: 20110808
  Receipt Date: 20110802
  Transmission Date: 20111222
  Serious: Yes (Other)
  Sender: FDA-Public Use
  Company Number: NL-PFIZER INC-2011176115

PATIENT
  Age: 62 Year
  Sex: Female

DRUGS (1)
  1. SUNITINIB MALATE [Suspect]

REACTIONS (4)
  - GASTROINTESTINAL PERFORATION [None]
  - ANAL ABSCESS [None]
  - INFLAMMATION [None]
  - ANAL FISTULA [None]
